FAERS Safety Report 8818352 (Version 3)
Quarter: 2015Q1

REPORT INFORMATION
  Report Type: Spontaneous
  Country: US (occurrence: US)
  Receive Date: 20121001
  Receipt Date: 20150218
  Transmission Date: 20150721
  Serious: No
  Sender: FDA-Public Use
  Company Number: US-009507513-1209USA010187

PATIENT
  Sex: Male
  Weight: 83.9 kg

DRUGS (2)
  1. PROPECIA [Suspect]
     Active Substance: FINASTERIDE
     Indication: ANDROGENETIC ALOPECIA
     Dosage: 1 MG, UNK
     Route: 048
     Dates: start: 2002, end: 20110202
  2. PROPECIA [Suspect]
     Active Substance: FINASTERIDE
     Indication: ALOPECIA

REACTIONS (10)
  - Hernia repair [Unknown]
  - Semen volume decreased [Unknown]
  - Anxiety [Unknown]
  - Sexual dysfunction [Unknown]
  - Ejaculation disorder [Unknown]
  - Erectile dysfunction [Unknown]
  - Disturbance in sexual arousal [Unknown]
  - Orgasm abnormal [Unknown]
  - Cognitive disorder [Unknown]
  - Panic attack [Unknown]

NARRATIVE: CASE EVENT DATE: 2007
